FAERS Safety Report 14271969 (Version 1)
Quarter: 2017Q4

REPORT INFORMATION
  Report Type: Report from Study
  Country: IT (occurrence: IT)
  Receive Date: 20171212
  Receipt Date: 20171212
  Transmission Date: 20180321
  Serious: Yes (Other)
  Sender: FDA-Public Use
  Company Number: IT-AUROBINDO-AUR-APL-2017-44708

PATIENT
  Age: 43 Year
  Sex: Male

DRUGS (1)
  1. ABACAVIR+LAMIVUDINE [Suspect]
     Active Substance: ABACAVIR SULFATE\LAMIVUDINE
     Indication: HIV INFECTION
     Dosage: UNK ()
     Route: 065

REACTIONS (1)
  - Lipodystrophy acquired [Unknown]
